FAERS Safety Report 10222197 (Version 3)
Quarter: 2014Q3

REPORT INFORMATION
  Report Type: Spontaneous
  Country: US (occurrence: US)
  Receive Date: 20140606
  Receipt Date: 20140725
  Transmission Date: 20150326
  Serious: Yes (Other)
  Sender: FDA-Public Use
  Company Number: US-TEVA-486130USA

PATIENT
  Sex: Female

DRUGS (1)
  1. COPAXONE [Suspect]
     Active Substance: GLATIRAMER ACETATE
     Indication: MULTIPLE SCLEROSIS
     Dates: start: 2000

REACTIONS (5)
  - Visual impairment [Unknown]
  - Central nervous system lesion [Unknown]
  - Adverse event [Unknown]
  - Drug ineffective [Unknown]
  - Injection site pain [Unknown]
